FAERS Safety Report 6193140-0 (Version None)
Quarter: 2009Q2

REPORT INFORMATION
  Report Type: 
  Country: None (occurrence: None)
  Receive Date: 20090514
  Receipt Date: 20090514
  Transmission Date: 20091009
  Serious: Yes (Disabling)
  Sender: FDA-Public Use
  Company Number: None

PATIENT
  Age: 64 Year
  Sex: Female
  Weight: 64.4108 kg

DRUGS (8)
  1. ALENDRONATE SODIUM [Suspect]
     Indication: OSTEOPENIA
     Dosage: 70MG WEEKLY PO
     Route: 048
     Dates: start: 20040510, end: 20090510
  2. ASPIRIN [Concomitant]
  3. CALCIUM VITD [Concomitant]
  4. DIOVAN [Concomitant]
  5. FLUOXETINE HCL [Concomitant]
  6. MIRTAZAPINE [Concomitant]
  7. NITROFURANTOIN [Concomitant]
  8. PREMARIN [Concomitant]

REACTIONS (1)
  - OSTEONECROSIS [None]
